FAERS Safety Report 6745821-5 (Version None)
Quarter: 2010Q2

REPORT INFORMATION
  Report Type: 
  Country: None (occurrence: None)
  Receive Date: 20100528
  Receipt Date: 20100520
  Transmission Date: 20101027
  Serious: Yes (Hospitalization)
  Sender: FDA-Public Use
  Company Number: US-JNJFOC-20100509406

PATIENT
  Sex: Male
  Weight: 149.69 kg

DRUGS (6)
  1. DURAGESIC-100 [Suspect]
     Indication: PAIN
     Route: 062
  2. DURAGESIC-100 [Suspect]
     Route: 062
  3. DURAGESIC-100 [Suspect]
     Route: 062
  4. PROMETHAZINE [Concomitant]
     Indication: NAUSEA
     Route: 048
  5. HYDROMORPHONE HCL [Concomitant]
     Indication: BREAKTHROUGH PAIN
     Route: 048
  6. OMEPRAZOLE [Concomitant]
     Indication: DYSPEPSIA
     Route: 048

REACTIONS (9)
  - HYPERSENSITIVITY [None]
  - INSOMNIA [None]
  - INTERVERTEBRAL DISC DISORDER [None]
  - PAIN [None]
  - PNEUMONIA [None]
  - PRODUCT QUALITY ISSUE [None]
  - SWELLING [None]
  - WEIGHT DECREASED [None]
  - WRONG TECHNIQUE IN DRUG USAGE PROCESS [None]
